FAERS Safety Report 6390505-9 (Version None)
Quarter: 2009Q4

REPORT INFORMATION
  Report Type: 
  Country: None (occurrence: None)
  Receive Date: 20091006
  Receipt Date: 20090923
  Transmission Date: 20100525
  Serious: No
  Sender: FDA-Public Use
  Company Number: US-B.I. PHARMACEUTICALS,INC./RIDGEFIELD-2009-BP-11241BP

PATIENT
  Sex: Male

DRUGS (7)
  1. FLOMAX [Suspect]
     Indication: PROSTATOMEGALY
     Route: 048
     Dates: start: 20080101
  2. FLOMAX [Suspect]
     Dosage: 0.4 MG
     Route: 048
  3. KETOPROFEN [Concomitant]
     Indication: ARTHRITIS
  4. DARVOCET [Concomitant]
     Indication: ARTHRALGIA
  5. CYMBALTA [Concomitant]
     Indication: DEPRESSION
  6. PROTONIX [Concomitant]
     Indication: HIATUS HERNIA
  7. FENESTERIDE [Concomitant]
     Indication: BENIGN PROSTATIC HYPERPLASIA

REACTIONS (2)
  - BALANCE DISORDER [None]
  - NASAL CONGESTION [None]
